FAERS Safety Report 16027507 (Version 2)
Quarter: 2019Q1

REPORT INFORMATION
  Report Type: Spontaneous
  Country: DE (occurrence: DE)
  Receive Date: 20190304
  Receipt Date: 20190305
  Transmission Date: 20190418
  Serious: Yes (Other)
  Sender: FDA-Public Use
  Company Number: DE-SA-2019SA057472

PATIENT
  Age: 79 Year
  Sex: Male

DRUGS (9)
  1. OMEPRAZOLE. [Concomitant]
     Active Substance: OMEPRAZOLE
     Indication: GASTRIC PH DECREASED
     Dosage: 1 DF, Q3D
     Route: 048
  2. RAMIPRIL. [Suspect]
     Active Substance: RAMIPRIL
     Indication: HYPERTENSION
     Dosage: UNK UNK, UNK
     Route: 065
  3. FENTANYL. [Suspect]
     Active Substance: FENTANYL
     Indication: KNEE OPERATION
     Dosage: UNK UNK, UNK
     Route: 065
     Dates: start: 2009
  4. MAGNESIUM [Concomitant]
     Active Substance: MAGNESIUM
     Dosage: UNK UNK, UNK
     Route: 048
  5. NITRAZEPAM [Suspect]
     Active Substance: NITRAZEPAM
     Indication: INSOMNIA
     Dosage: 0.5, UNK
     Route: 065
  6. ASPIRIN. [Concomitant]
     Active Substance: ASPIRIN
     Dosage: UNK UNK, UNK
     Route: 048
  7. NOVAMINSULFON [Concomitant]
     Active Substance: METAMIZOLE
     Indication: PAIN
     Dosage: 2 UNK, UNK
     Route: 048
  8. TAMSULOSIN HYDROCHLORIDE. [Suspect]
     Active Substance: TAMSULOSIN HYDROCHLORIDE
     Indication: BENIGN PROSTATIC HYPERPLASIA
     Dosage: UNK UNK, UNK
     Route: 065
  9. SEEBRI [Concomitant]
     Active Substance: GLYCOPYRROLATE
     Indication: BRONCHITIS
     Dosage: UNK UNK, UNK
     Route: 055

REACTIONS (5)
  - Fatigue [Unknown]
  - Memory impairment [Unknown]
  - Drug dependence [Unknown]
  - Feeling cold [Unknown]
  - Dyspnoea [Unknown]
